FAERS Safety Report 25731498 (Version 1)
Quarter: 2025Q3

REPORT INFORMATION
  Report Type: Spontaneous
  Country: US (occurrence: None)
  Receive Date: 20250827
  Receipt Date: 20250827
  Transmission Date: 20251021
  Serious: Yes (Death)
  Sender: FDA-CTU
  Company Number: None

PATIENT
  Sex: Male

DRUGS (11)
  1. ENBREL [Suspect]
     Active Substance: ETANERCEPT
     Indication: Product used for unknown indication
     Dosage: INJECT 1 PEN UNDER THE SKIN (SUBCUTANEOUS INJECTION) EVERY WEEK
     Route: 058
     Dates: start: 20240111
  2. ALPRAZOLAM TAB 0.25MG [Concomitant]
  3. ATORVASTATIN TAB 10MG [Concomitant]
  4. BUPROPION TAB 150MG SR [Concomitant]
  5. DOXYCYCL HYC CAP 1 00MG [Concomitant]
  6. ELIQUIS [Concomitant]
     Active Substance: APIXABAN
  7. ENBREL INJ 50MG/ML [Concomitant]
  8. GEMTESA TAB 75MG [Concomitant]
  9. ACETAMINOPHEN\HYDROCODONE [Concomitant]
     Active Substance: ACETAMINOPHEN\HYDROCODONE
  10. METHOCARBAM TAB 750MG [Concomitant]
  11. METOPROL SUC TAB 25MG ER [Concomitant]

REACTIONS (1)
  - Death [None]
